FAERS Safety Report 8444630-9 (Version None)
Quarter: 2012Q2

REPORT INFORMATION
  Report Type: 
  Country: None (occurrence: None)
  Receive Date: 20120323
  Receipt Date: 20110818
  Transmission Date: 20120825
  Serious: Yes (Hospitalization)
  Sender: FDA-Public Use
  Company Number: 163-21880-11061286

PATIENT
  Age: 69 Year
  Sex: Female
  Weight: 97.1 kg

DRUGS (7)
  1. REVLIMID [Suspect]
  2. REVLIMID [Suspect]
  3. VELCADE [Concomitant]
  4. REVLIMID [Suspect]
     Indication: MULTIPLE MYELOMA
     Dosage: 25 MG, DAILY X 21 DAYS, PO; 20 MG, DAILY FOR 21 DAYS, PO; 15 MG, DAILY X 21 DAYS, PO; 10 MG, DAILY X
     Route: 048
     Dates: start: 20110601
  5. REVLIMID [Suspect]
     Indication: MULTIPLE MYELOMA
     Dosage: 25 MG, DAILY X 21 DAYS, PO; 20 MG, DAILY FOR 21 DAYS, PO; 15 MG, DAILY X 21 DAYS, PO; 10 MG, DAILY X
     Route: 048
     Dates: start: 20100701
  6. REVLIMID [Suspect]
     Indication: MULTIPLE MYELOMA
     Dosage: 25 MG, DAILY X 21 DAYS, PO; 20 MG, DAILY FOR 21 DAYS, PO; 15 MG, DAILY X 21 DAYS, PO; 10 MG, DAILY X
     Route: 048
     Dates: start: 20110401
  7. REVLIMID [Suspect]
     Indication: MULTIPLE MYELOMA
     Dosage: 25 MG, DAILY X 21 DAYS, PO; 20 MG, DAILY FOR 21 DAYS, PO; 15 MG, DAILY X 21 DAYS, PO; 10 MG, DAILY X
     Route: 048
     Dates: start: 20110801

REACTIONS (2)
  - ANAEMIA [None]
  - LEUKOPENIA [None]
